FAERS Safety Report 4492480-0 (Version None)
Quarter: 2004Q4

REPORT INFORMATION
  Report Type: 
  Country: None (occurrence: None)
  Receive Date: 20041029
  Receipt Date: 20041021
  Transmission Date: 20050328
  Serious: Yes (Hospitalization)
  Sender: FDA-Public Use
  Company Number: STA-AE-04-MTX-510

PATIENT
  Age: 68 Year
  Sex: Female

DRUGS (9)
  1. RHEUMATREX [Suspect]
     Indication: RHEUMATOID ARTHRITIS
     Dosage: 8 MG WEEKLY, ORAL
     Route: 048
     Dates: start: 20020801
  2. PREDNISOLONE [Suspect]
     Indication: RHEUMATOID ARTHRITIS
     Dosage: 6 MG DAILY, ORAL
     Route: 048
     Dates: start: 20011101
  3. SOLETON (ZALTOPROFEN) [Concomitant]
  4. ALFAROL (ALFACALCIDOL) [Concomitant]
  5. RHEUMATREX [Suspect]
     Indication: RHEUMATOID ARTHRITIS
     Dosage: 6 MG, WEEKLY, ORAL
     Route: 048
     Dates: start: 20011112, end: 20020731
  6. REMICADE [Suspect]
     Indication: RHEUMATOID ARTHRITIS
     Dosage: 3 MG/KG/DAY, INTRAVENOUS DRIP
     Route: 041
     Dates: start: 20040318, end: 20040318
  7. REMICADE [Suspect]
     Indication: RHEUMATOID ARTHRITIS
     Dosage: 3 MG/KG/DAY, INTRAVENOUS DRIP
     Route: 041
     Dates: start: 20040122, end: 20040122
  8. REMICADE [Suspect]
     Indication: RHEUMATOID ARTHRITIS
     Dosage: 3 MG/KG/DAY, INTRAVENOUS DRIP
     Route: 041
     Dates: start: 20031211, end: 20031211
  9. REMICADE [Suspect]
     Indication: RHEUMATOID ARTHRITIS
     Dosage: 3 MG/KG/DAY, INTRAVENOUS DRIP
     Route: 041
     Dates: start: 20031225, end: 20031225

REACTIONS (3)
  - PATHOGEN RESISTANCE [None]
  - PNEUMONIA [None]
  - SPUTUM CULTURE POSITIVE [None]
